FAERS Safety Report 21284694 (Version 1)
Quarter: 2022Q3

REPORT INFORMATION
  Report Type: Spontaneous
  Country: US (occurrence: US)
  Receive Date: 20220902
  Receipt Date: 20220902
  Transmission Date: 20221027
  Serious: Yes (Other)
  Sender: FDA-Public Use
  Company Number: US-NOVOPROD-953694

PATIENT
  Sex: Female

DRUGS (3)
  1. OZEMPIC [Suspect]
     Active Substance: SEMAGLUTIDE
     Indication: Type 2 diabetes mellitus
     Dosage: UNK
     Route: 058
  2. LANTUS [Suspect]
     Active Substance: INSULIN GLARGINE
     Indication: Type 2 diabetes mellitus
     Dosage: 26 IU, QD
     Route: 058
  3. HUMALOG [Concomitant]
     Active Substance: INSULIN LISPRO
     Indication: Type 2 diabetes mellitus
     Dosage: WITH MEALS AND EXTRA DOSE AT NIGHT

REACTIONS (7)
  - Glaucoma [Recovered/Resolved]
  - Glaucoma [Unknown]
  - Visual impairment [Unknown]
  - Movement disorder [Unknown]
  - Sciatica [Unknown]
  - Weight increased [Unknown]
  - Blood glucose increased [Unknown]
